FAERS Safety Report 17032265 (Version 1)
Quarter: 2019Q4

REPORT INFORMATION
  Report Type: Report from Study
  Country: US (occurrence: US)
  Receive Date: 20191114
  Receipt Date: 20191114
  Transmission Date: 20200122
  Serious: No
  Sender: FDA-Public Use
  Company Number: NVSC2019US035327

PATIENT
  Sex: Female

DRUGS (1)
  1. NITROGLYCERINE SANDOZ SPRAY 0,4 MG/DOSIS, SPRAY VOOR SUBLINGUAAL GEBRU [Suspect]
     Active Substance: NITROGLYCERIN
     Indication: PRODUCT USED FOR UNKNOWN INDICATION
     Route: 065

REACTIONS (1)
  - Drug hypersensitivity [Unknown]
